FAERS Safety Report 11888819 (Version 2)
Quarter: 2016Q1

REPORT INFORMATION
  Report Type: Spontaneous
  Country: GB (occurrence: GB)
  Receive Date: 20160105
  Receipt Date: 20160203
  Transmission Date: 20160526
  Serious: Yes (Death, Other)
  Sender: FDA-Public Use
  Company Number: GB-TEVA-622194ACC

PATIENT
  Age: 75 Year
  Sex: Female

DRUGS (4)
  1. EXEMESTANE. [Interacting]
     Active Substance: EXEMESTANE
     Indication: BREAST CANCER METASTATIC
  2. ANTIBIOTICS [Concomitant]
     Active Substance: UNSPECIFIED INGREDIENT
     Indication: CELLULITIS
  3. EVEROLIMUS [Interacting]
     Active Substance: EVEROLIMUS
     Indication: BREAST CANCER METASTATIC
  4. FLUCONAZOLE. [Suspect]
     Active Substance: FLUCONAZOLE
     Indication: CELLULITIS

REACTIONS (2)
  - Diarrhoea [Fatal]
  - Labelled drug-drug interaction medication error [Unknown]
